FAERS Safety Report 19490370 (Version 1)
Quarter: 2021Q3

REPORT INFORMATION
  Report Type: Spontaneous
  Country: GB (occurrence: GB)
  Receive Date: 20210705
  Receipt Date: 20210705
  Transmission Date: 20211014
  Serious: Yes (Other)
  Sender: FDA-Public Use
  Company Number: GB-NOVOPROD-824697

PATIENT
  Age: 60 Year
  Sex: Female
  Weight: 84.36 kg

DRUGS (3)
  1. PROGESTERON [Concomitant]
     Active Substance: PROGESTERONE
     Dosage: 100 MG
     Dates: start: 20190201
  2. VAGIFEM [Suspect]
     Active Substance: ESTRADIOL
     Indication: VULVOVAGINAL DISCOMFORT
     Dosage: 10 MICROGRAMS
     Route: 048
     Dates: start: 20210614
  3. ESTRADIOL. [Concomitant]
     Active Substance: ESTRADIOL
     Indication: ILL-DEFINED DISORDER
     Dosage: UNK
     Dates: start: 20190201

REACTIONS (2)
  - Abdominal pain upper [Not Recovered/Not Resolved]
  - Abdominal distension [Not Recovered/Not Resolved]

NARRATIVE: CASE EVENT DATE: 20210614
